FAERS Safety Report 20017402 (Version 3)
Quarter: 2021Q4

REPORT INFORMATION
  Report Type: Report from Study
  Country: DE (occurrence: DE)
  Receive Date: 20211030
  Receipt Date: 20211209
  Transmission Date: 20220303
  Serious: Yes (Death)
  Sender: FDA-Public Use
  Company Number: DE-NOVARTISPH-NVSC2021DE248334

PATIENT
  Sex: Female

DRUGS (5)
  1. KISQALI [Suspect]
     Active Substance: RIBOCICLIB
     Indication: Breast cancer metastatic
     Dosage: 600 MG, QD
     Route: 048
     Dates: start: 20190119, end: 20200427
  2. KISQALI [Suspect]
     Active Substance: RIBOCICLIB
     Dosage: 600 MG, QD (REGIMEN 21 DAYS INTAKE, 7 DAYS PAUSE)
     Route: 048
     Dates: start: 20200428, end: 20200721
  3. FULVESTRANT [Suspect]
     Active Substance: FULVESTRANT
     Indication: Breast cancer metastatic
     Dosage: 500 MG, QD
     Route: 030
     Dates: start: 20200428, end: 20200623
  4. FULVESTRANT [Suspect]
     Active Substance: FULVESTRANT
     Dosage: 500 MG, QMO (DAILY DOSE)
     Route: 030
     Dates: start: 20200624, end: 20200722
  5. LETROZOLE [Suspect]
     Active Substance: LETROZOLE
     Indication: Breast cancer metastatic
     Dosage: 2.5 MG, QD
     Route: 048
     Dates: start: 20190119, end: 20200427

REACTIONS (1)
  - Breast cancer metastatic [Fatal]

NARRATIVE: CASE EVENT DATE: 20211025
